FAERS Safety Report 4909386-2 (Version None)
Quarter: 2006Q1

REPORT INFORMATION
  Report Type: 
  Country: None (occurrence: None)
  Receive Date: 20060213
  Receipt Date: 20060202
  Transmission Date: 20060701
  Serious: Yes (Death, Hospitalization, Other)
  Sender: FDA-Public Use
  Company Number: PHEH2006US01630

PATIENT
  Age: 54 Year
  Sex: Male

DRUGS (4)
  1. CLOZARIL [Suspect]
     Indication: SCHIZOAFFECTIVE DISORDER
     Dosage: 250 MG, QHS
     Route: 048
     Dates: start: 20010401
  2. COGENTIN [Concomitant]
     Indication: SCHIZOAFFECTIVE DISORDER
     Dosage: 2 MG, QHS
  3. ESKALITH - SLOW RELEASE [Concomitant]
     Indication: SCHIZOAFFECTIVE DISORDER
     Dosage: 450 MG, BID
  4. GEODON [Concomitant]
     Indication: SCHIZOAFFECTIVE DISORDER
     Dosage: 40 MG, BID

REACTIONS (9)
  - ASTHENIA [None]
  - COGNITIVE DETERIORATION [None]
  - CONSTIPATION [None]
  - DECUBITUS ULCER [None]
  - HYPERTENSION [None]
  - NEUROLEPTIC MALIGNANT SYNDROME [None]
  - PSYCHOTIC DISORDER [None]
  - PULMONARY EMBOLISM [None]
  - SKIN INFECTION [None]
